FAERS Safety Report 10215870 (Version 1)
Quarter: 2014Q2

REPORT INFORMATION
  Report Type: Spontaneous
  Country: FR (occurrence: FR)
  Receive Date: 20140604
  Receipt Date: 20140604
  Transmission Date: 20141212
  Serious: Yes (Other)
  Sender: FDA-Public Use
  Company Number: FR-ROCHE-1413337

PATIENT
  Age: 49 Year
  Sex: Female

DRUGS (7)
  1. PEGASYS [Suspect]
     Indication: HEPATITIS C
     Route: 058
     Dates: start: 20140219
  2. COPEGUS [Suspect]
     Indication: HEPATITIS C
     Route: 048
     Dates: start: 20140219
  3. SIMEPREVIR [Suspect]
     Indication: HEPATITIS C
     Route: 048
     Dates: start: 20140219
  4. AVLOCARDYL [Concomitant]
  5. STILNOX [Concomitant]
  6. SERESTA [Concomitant]
  7. SUBUTEX [Concomitant]

REACTIONS (1)
  - Pancytopenia [Not Recovered/Not Resolved]
